FAERS Safety Report 6976483-X (Version None)
Quarter: 2010Q3

REPORT INFORMATION
  Report Type: 
  Country: None (occurrence: None)
  Receive Date: 20100910
  Receipt Date: 20100826
  Transmission Date: 20110219
  Serious: No
  Sender: FDA-Public Use
  Company Number: US-PFIZER INC-2010108533

PATIENT
  Sex: Female

DRUGS (1)
  1. AMLODIPINE BESYLATE [Suspect]
     Indication: HYPERTENSION
     Dosage: 10 MG, 1X/DAY
     Route: 048
     Dates: start: 20090401, end: 20091001

REACTIONS (5)
  - DIARRHOEA [None]
  - DRUG INTOLERANCE [None]
  - DRY SKIN [None]
  - SKIN EXFOLIATION [None]
  - WEIGHT DECREASED [None]
